FAERS Safety Report 17407762 (Version 3)
Quarter: 2020Q3

REPORT INFORMATION
  Report Type: Report from Study
  Country: US (occurrence: US)
  Receive Date: 20200212
  Receipt Date: 20200803
  Transmission Date: 20201102
  Serious: Yes (Death, Other)
  Sender: FDA-Public Use
  Company Number: US-PFIZER INC-2020052438

PATIENT
  Age: 12 Year

DRUGS (7)
  1. DEXAMETHASONE. [Suspect]
     Active Substance: DEXAMETHASONE
     Indication: B PRECURSOR TYPE ACUTE LEUKAEMIA
     Dosage: 20 MG/M2, 2X/DAY (20MG/M2/DOSE DIVIDED TWICE DAILY DAYS 8?12 AND 22?26)
  2. MITOXANTRONE HCL [Suspect]
     Active Substance: MITOXANTRONE HYDROCHLORIDE
     Indication: B PRECURSOR TYPE ACUTE LEUKAEMIA
     Dosage: 10 MG/M2, CYCLIC (10MG/M2/DOSE DAYS 8 AND 9)
  3. DECITABINE. [Suspect]
     Active Substance: DECITABINE
     Indication: B PRECURSOR TYPE ACUTE LEUKAEMIA
     Dosage: 10 MG/M2, CYCLIC DAYS 1?5 AND 15?19
     Route: 042
  4. VORINOSTAT [Suspect]
     Active Substance: VORINOSTAT
     Indication: B PRECURSOR TYPE ACUTE LEUKAEMIA
     Dosage: 180 MG/M2, CYCLIC (180MG/M2/DOSE, TABLET OR SUSPENSION, MAX DOSE 400MG DAILY,  DAYS 2?7 AND 16?21)
     Route: 048
  5. PEG/L?ASPARAGINASE [Suspect]
     Active Substance: PEGASPARGASE
     Indication: B PRECURSOR TYPE ACUTE LEUKAEMIA
     Dosage: 2500 IU/M2/DOSE CYCLIC, ON DAYS 10 AND 24)
  6. VINCRISTINE SULFATE. [Suspect]
     Active Substance: VINCRISTINE SULFATE
     Indication: B PRECURSOR TYPE ACUTE LEUKAEMIA
     Dosage: 1.5 MG/M2, CYCLIC (1.5MG/M2/DOSE (MAX DOSE 2MG) DAYS 10, 17, 24 AND 31)
  7. METHOTREXATE SODIUM. [Suspect]
     Active Substance: METHOTREXATE SODIUM
     Indication: B PRECURSOR TYPE ACUTE LEUKAEMIA
     Dosage: UNK (DOSED BY AGE AND CNS STATUS)
     Route: 037

REACTIONS (3)
  - Soft tissue infection [Unknown]
  - Pneumonia [Unknown]
  - Sepsis [Fatal]
